FAERS Safety Report 20715042 (Version 2)
Quarter: 2022Q3

REPORT INFORMATION
  Report Type: Spontaneous
  Country: US (occurrence: US)
  Receive Date: 20220415
  Receipt Date: 20220712
  Transmission Date: 20221027
  Serious: No
  Sender: FDA-Public Use
  Company Number: US-MYOVANT SCIENCES GMBH-2021MYSCI1200698

PATIENT
  Age: 68 Year
  Sex: Male
  Weight: 88.435 kg

DRUGS (10)
  1. ORGOVYX [Suspect]
     Active Substance: RELUGOLIX
     Indication: Prostate cancer
     Dosage: 360 MILLIGRAM, ONE TIME DOSE
     Route: 048
     Dates: start: 20211102, end: 20211102
  2. ORGOVYX [Suspect]
     Active Substance: RELUGOLIX
     Dosage: 120 MILLIGRAM, QD
     Route: 048
     Dates: start: 20211103
  3. ORGOVYX [Suspect]
     Active Substance: RELUGOLIX
     Dosage: 120 MILLIGRAM, EVERY 36 HOURS
     Route: 048
     Dates: start: 20211228
  4. ORGOVYX [Suspect]
     Active Substance: RELUGOLIX
     Dosage: 120 MILLIGRAM, EVERY OTHER DAY
     Route: 048
  5. FERROUS SULFATE [Concomitant]
     Active Substance: FERROUS SULFATE
     Indication: Product used for unknown indication
     Dosage: 325 MILLIGRAM, QD
     Route: 048
     Dates: start: 202111
  6. ATORVASTATIN [Concomitant]
     Active Substance: ATORVASTATIN
     Indication: Product used for unknown indication
     Dosage: 40 MILLIGRAM, QD
     Route: 048
     Dates: start: 20210901
  7. METOPROLOL [Concomitant]
     Active Substance: METOPROLOL
     Indication: Product used for unknown indication
     Dosage: 25 MILLIGRAM, QD
     Route: 048
     Dates: start: 20210901
  8. OMEPRAZOLE [Concomitant]
     Active Substance: OMEPRAZOLE
     Indication: Product used for unknown indication
     Dosage: 20 MILLIGRAM, QD
     Route: 048
     Dates: start: 20211125
  9. ZINC SULFATE [Concomitant]
     Active Substance: ZINC SULFATE
     Indication: Product used for unknown indication
     Dosage: 500 MILLIGRAM, QD
     Route: 048
  10. VITAMIN D3 [Concomitant]
     Active Substance: CHOLECALCIFEROL
     Indication: Product used for unknown indication
     Dosage: 8000 INTERNATIONAL UNIT, QD
     Route: 048

REACTIONS (11)
  - Blood pressure increased [Not Recovered/Not Resolved]
  - Dyspnoea [Unknown]
  - Weight loss poor [Unknown]
  - Muscle spasms [Unknown]
  - Rash [Recovered/Resolved]
  - Hot flush [Not Recovered/Not Resolved]
  - Fatigue [Unknown]
  - Weight increased [Not Recovered/Not Resolved]
  - Pain in extremity [Unknown]
  - Post-traumatic stress disorder [Unknown]
  - Inappropriate schedule of product administration [Recovered/Resolved]

NARRATIVE: CASE EVENT DATE: 20211201
